FAERS Safety Report 7661139-0 (Version None)
Quarter: 2011Q3

REPORT INFORMATION
  Report Type: 
  Country: None (occurrence: None)
  Receive Date: 20110805
  Receipt Date: 20100923
  Transmission Date: 20111222
  Serious: No
  Sender: FDA-Public Use
  Company Number: US-ABBOTT-10P-163-0673089-00

PATIENT
  Sex: Male
  Weight: 98.972 kg

DRUGS (6)
  1. COVAR [Concomitant]
     Indication: PRODUCT USED FOR UNKNOWN INDICATION
  2. SIMVASTATIN [Concomitant]
     Indication: PRODUCT USED FOR UNKNOWN INDICATION
  3. FANOTRINE [Concomitant]
     Indication: PRODUCT USED FOR UNKNOWN INDICATION
  4. INHALER [Concomitant]
     Indication: PRODUCT USED FOR UNKNOWN INDICATION
  5. NIASPAN [Suspect]
     Indication: PRODUCT USED FOR UNKNOWN INDICATION
     Dosage: DAILY AT BEDTIME
     Dates: start: 20100911
  6. TRIAMTERENE [Concomitant]
     Indication: PRODUCT USED FOR UNKNOWN INDICATION

REACTIONS (7)
  - JOINT INJURY [None]
  - COUGH [None]
  - HEADACHE [None]
  - PYREXIA [None]
  - INSOMNIA [None]
  - BALANCE DISORDER [None]
  - FALL [None]
